FAERS Safety Report 6808619-5 (Version None)
Quarter: 2010Q2

REPORT INFORMATION
  Report Type: 
  Country: None (occurrence: None)
  Receive Date: 20100629
  Receipt Date: 20090918
  Transmission Date: 20101027
  Serious: No
  Sender: FDA-Public Use
  Company Number: US-PFIZER INC-2009232945

PATIENT
  Sex: Female
  Weight: 60.771 kg

DRUGS (2)
  1. XANAX [Suspect]
     Indication: SLEEP DISORDER
     Dosage: 0.25 MG, UNK
     Dates: start: 20090101
  2. XANAX [Suspect]
     Dosage: 0.5 MG, UNK
     Dates: start: 20090101

REACTIONS (1)
  - DRUG INEFFECTIVE [None]
